FAERS Safety Report 6371684-6 (Version None)
Quarter: 2009Q3

REPORT INFORMATION
  Report Type: 
  Country: None (occurrence: None)
  Receive Date: 20090923
  Receipt Date: 20080731
  Transmission Date: 20100115
  Serious: No
  Sender: FDA-Public Use
  Company Number: US-ASTRAZENECA-2008UW10018

PATIENT
  Age: 385 Month
  Sex: Female
  Weight: 86.2 kg

DRUGS (7)
  1. SEROQUEL [Suspect]
     Indication: BIPOLAR DISORDER
     Dosage: 600 MG TO 900 MG
     Route: 048
     Dates: start: 20011001, end: 20080301
  2. SEROQUEL [Suspect]
     Indication: MAJOR DEPRESSION
     Dosage: 600 MG TO 900 MG
     Route: 048
     Dates: start: 20011001, end: 20080301
  3. SEROQUEL [Suspect]
     Route: 048
  4. SEROQUEL [Suspect]
     Route: 048
  5. DESYREL [Concomitant]
  6. ZOLOFT [Concomitant]
  7. PROZAC [Concomitant]
     Dates: start: 20010701, end: 20080401

REACTIONS (5)
  - EAR PAIN [None]
  - GALLBLADDER DISORDER [None]
  - INFLUENZA [None]
  - NASOPHARYNGITIS [None]
  - TYPE 2 DIABETES MELLITUS [None]
